FAERS Safety Report 19835282 (Version 1)
Quarter: 2021Q3

REPORT INFORMATION
  Report Type: Spontaneous
  Country: US (occurrence: US)
  Receive Date: 20210915
  Receipt Date: 20210915
  Transmission Date: 20211014
  Serious: No
  Sender: FDA-Public Use
  Company Number: US-PFIZER INC-2021397948

PATIENT
  Age: 56 Year
  Sex: Female
  Weight: 77.55 kg

DRUGS (13)
  1. INLYTA [Suspect]
     Active Substance: AXITINIB
     Indication: RENAL CELL CARCINOMA
     Dosage: 5 MG, 2X/DAY
     Route: 048
     Dates: start: 20210323
  2. INLYTA [Suspect]
     Active Substance: AXITINIB
     Indication: RENAL CANCER
  3. PROMETHAZINE [Concomitant]
     Active Substance: PROMETHAZINE HYDROCHLORIDE
  4. LIDOCAINE AND PRILOCAINE [Concomitant]
     Active Substance: LIDOCAINE\PRILOCAINE
  5. SPIRIVA [Concomitant]
     Active Substance: TIOTROPIUM BROMIDE MONOHYDRATE
  6. OXYCODONE AND ACETAMINOPHEN [Concomitant]
     Active Substance: ACETAMINOPHEN\OXYCODONE HYDROCHLORIDE
  7. HYDRALAZINE [Concomitant]
     Active Substance: HYDRALAZINE HYDROCHLORIDE
  8. ALBUTEROL HFA [Concomitant]
     Active Substance: ALBUTEROL SULFATE
  9. BUPROPION XL [Concomitant]
     Active Substance: BUPROPION
  10. TIZANIDINE. [Concomitant]
     Active Substance: TIZANIDINE
  11. VIT B 12 [Concomitant]
     Active Substance: CYANOCOBALAMIN
  12. CLONAZEPAM. [Concomitant]
     Active Substance: CLONAZEPAM
  13. MODERNA COVID?19 VACCINE [Concomitant]
     Active Substance: CX-024414

REACTIONS (5)
  - Arthralgia [Unknown]
  - Fatigue [Unknown]
  - Stomatitis [Unknown]
  - Spinal pain [Unknown]
  - Back pain [Unknown]
